FAERS Safety Report 25136381 (Version 1)
Quarter: 2025Q1

REPORT INFORMATION
  Report Type: Spontaneous
  Country: BR (occurrence: BR)
  Receive Date: 20250328
  Receipt Date: 20250328
  Transmission Date: 20250409
  Serious: Yes (Death)
  Sender: VERTEX
  Company Number: BR-VERTEX PHARMACEUTICALS-2025-005075

PATIENT
  Sex: Female

DRUGS (1)
  1. ELEXACAFTOR\IVACAFTOR\TEZACAFTOR [Suspect]
     Active Substance: ELEXACAFTOR\IVACAFTOR\TEZACAFTOR
     Indication: Cystic fibrosis
     Route: 048
     Dates: start: 20240516, end: 20250323

REACTIONS (2)
  - Abdominal sepsis [Fatal]
  - Appendicitis [Fatal]

NARRATIVE: CASE EVENT DATE: 20250321
